FAERS Safety Report 9225061 (Version 1)
Quarter: 2013Q2

REPORT INFORMATION
  Report Type: Spontaneous
  Country: US (occurrence: None)
  Receive Date: 20130410
  Receipt Date: 20130410
  Transmission Date: 20140414
  Serious: Yes (Death, Hospitalization)
  Sender: FDA-Public Use
  Company Number: None

PATIENT
  Age: 73 Year
  Sex: Male
  Weight: 80 kg

DRUGS (14)
  1. XARELTO [Suspect]
     Indication: ATRIAL FIBRILLATION
     Dosage: 15MG  DAILY  PO?RECENT
     Route: 048
  2. XARELTO [Suspect]
     Indication: CARDIOVERSION
     Dosage: 15MG  DAILY  PO?RECENT
     Route: 048
  3. LEXAPRO [Concomitant]
  4. BUMEX [Concomitant]
  5. LEVOTHYROXINE [Concomitant]
  6. TIKOSYN [Concomitant]
  7. THIAMINE [Concomitant]
  8. ALBUTEROL [Concomitant]
  9. MVI [Concomitant]
  10. DIGOXIN [Concomitant]
  11. JANUVIA [Concomitant]
  12. ALLOPURINOL [Concomitant]
  13. CARVEDILO [Concomitant]
  14. SPIRONOLACTONE [Concomitant]

REACTIONS (7)
  - Fall [None]
  - Haematoma [None]
  - Subarachnoid haemorrhage [None]
  - Sepsis [None]
  - Urinary tract infection [None]
  - Pneumonia aspiration [None]
  - Coma [None]
